FAERS Safety Report 9057245 (Version 1)
Quarter: 2013Q1

REPORT INFORMATION
  Report Type: Spontaneous
  Country: US (occurrence: US)
  Receive Date: 20130131
  Receipt Date: 20130131
  Transmission Date: 20140127
  Serious: Yes (Death)
  Sender: FDA-Public Use
  Company Number: US-GLAXOSMITHKLINE-A1010276A

PATIENT
  Age: 75 Year
  Sex: Male

DRUGS (1)
  1. PROMACTA [Suspect]
     Indication: PLASMA CELL MYELOMA
     Dosage: 75MG PER DAY
     Route: 065

REACTIONS (2)
  - Death [Fatal]
  - Off label use [Unknown]
